FAERS Safety Report 13039527 (Version 1)
Quarter: 2016Q4

REPORT INFORMATION
  Report Type: Spontaneous
  Country: US (occurrence: US)
  Receive Date: 20161216
  Receipt Date: 20161216
  Transmission Date: 20170207
  Serious: Yes (Other)
  Sender: FDA-Public Use
  Company Number: None

PATIENT
  Age: 70 Year
  Sex: Female

DRUGS (2)
  1. GENVOYA [Suspect]
     Active Substance: COBICISTAT\ELVITEGRAVIR\EMTRICITABINE\TENOFOVIR ALAFENAMIDE FUMARATE
     Indication: HIV INFECTION
     Route: 048
  2. VITAMIN D [Suspect]
     Active Substance: CHOLECALCIFEROL
     Indication: BONE DENSITY DECREASED
     Route: 048

REACTIONS (3)
  - Abdominal distension [None]
  - Nausea [None]
  - Bone pain [None]
